FAERS Safety Report 22519399 (Version 1)
Quarter: 2023Q2

REPORT INFORMATION
  Report Type: Spontaneous
  Country: US (occurrence: US)
  Receive Date: 20230605
  Receipt Date: 20230605
  Transmission Date: 20230721
  Serious: Yes (Other)
  Sender: FDA-Public Use
  Company Number: US-009507513-2306USA000534

PATIENT
  Sex: Female

DRUGS (2)
  1. KEYTRUDA [Suspect]
     Active Substance: PEMBROLIZUMAB
     Indication: Invasive ductal breast carcinoma
     Dosage: UNK; COMBINED WITH CHEMOTHERAPY
  2. KEYTRUDA [Suspect]
     Active Substance: PEMBROLIZUMAB
     Indication: Triple negative breast cancer
     Dosage: UNK; MONOTHERAPY

REACTIONS (12)
  - Mastectomy [Unknown]
  - Lymphadenectomy [Unknown]
  - Radiotherapy [Unknown]
  - Brain fog [Recovering/Resolving]
  - Platelet count abnormal [Unknown]
  - Joint range of motion decreased [Recovering/Resolving]
  - Axillary web syndrome [Recovering/Resolving]
  - Pain [Unknown]
  - Neutrophil count decreased [Unknown]
  - Dizziness [Unknown]
  - Fatigue [Unknown]
  - Anaemia [Unknown]
